FAERS Safety Report 7149364-9 (Version None)
Quarter: 2010Q4

REPORT INFORMATION
  Report Type: 
  Country: None (occurrence: None)
  Receive Date: 20101209
  Receipt Date: 20100917
  Transmission Date: 20110411
  Serious: No
  Sender: FDA-Public Use
  Company Number: US-KINGPHARMUSA00001-K201001200

PATIENT
  Age: 50 Year
  Sex: Female

DRUGS (1)
  1. EMBEDA [Suspect]
     Dosage: UNK
     Route: 048

REACTIONS (2)
  - ABDOMINAL DISCOMFORT [None]
  - GASTRITIS [None]
